FAERS Safety Report 4847491-X (Version None)
Quarter: 2005Q4

REPORT INFORMATION
  Report Type: 
  Country: None (occurrence: None)
  Receive Date: 20051207
  Receipt Date: 20040811
  Transmission Date: 20060501
  Serious: Yes (Death, Hospitalization)
  Sender: FDA-Public Use
  Company Number: FR-AMGEN-US087470

PATIENT
  Age: 65 Year
  Sex: Male

DRUGS (13)
  1. ENBREL [Suspect]
     Indication: RHEUMATOID ARTHRITIS
     Route: 058
     Dates: start: 20000316, end: 20000622
  2. ARAVA [Suspect]
     Route: 048
     Dates: start: 20010118, end: 20040101
  3. CHLORAMBUCIL [Suspect]
     Route: 048
  4. CORTANCYL [Suspect]
     Route: 048
  5. COZAAR [Suspect]
     Route: 048
  6. DETENSIEL [Suspect]
     Route: 048
  7. PRAVASTATIN [Suspect]
     Route: 048
  8. ACETYLSALICYLATE LYSINE [Suspect]
     Route: 048
  9. LASILIX [Suspect]
     Route: 048
  10. MOPRAL [Suspect]
     Route: 048
  11. NOVATREX [Suspect]
     Route: 048
     Dates: start: 20000715, end: 20010101
  12. REMICADE [Suspect]
     Route: 042
     Dates: start: 20000710
  13. PENTASA [Concomitant]
     Dates: start: 20040602

REACTIONS (1)
  - T-CELL LYMPHOMA STAGE IV [None]
